FAERS Safety Report 4493163-3 (Version None)
Quarter: 2004Q4

REPORT INFORMATION
  Report Type: 
  Country: None (occurrence: None)
  Receive Date: 20041104
  Receipt Date: 20041027
  Transmission Date: 20050328
  Serious: Yes (Hospitalization)
  Sender: FDA-Public Use
  Company Number: ZA-ROCHE-384433

PATIENT
  Age: 48 Year
  Sex: Male
  Weight: 75 kg

DRUGS (7)
  1. CAPECITABINE [Suspect]
     Dosage: ON DAYS ONE THROUGH FOURTEEN OF A TWENTY-ONE DAY CYCLE.
     Route: 048
     Dates: start: 20040604, end: 20040922
  2. OXALIPLATIN [Suspect]
     Dosage: TAKEN ON DAY 1 OF 3 WEEK CYCLE, PRIOR TO FIRST DOSE OF CAPECITABINE.
     Route: 042
     Dates: start: 20040604, end: 20040908
  3. BETANOID [Concomitant]
     Dates: start: 20040604
  4. ZAMANON [Concomitant]
     Dates: start: 20040604
  5. MYPRODOL [Concomitant]
     Dates: start: 20040915
  6. ALPRAZOLAM [Concomitant]
     Dates: start: 20040924
  7. DORMONOCT [Concomitant]
     Dates: start: 20041012

REACTIONS (1)
  - WOUND DEHISCENCE [None]
